FAERS Safety Report 10205752 (Version 1)
Quarter: 2014Q2

REPORT INFORMATION
  Report Type: Report from Study
  Country: BR (occurrence: BR)
  Receive Date: 20140530
  Receipt Date: 20140530
  Transmission Date: 20141212
  Serious: Yes (Other)
  Sender: FDA-Public Use
  Company Number: BR-AMGEN-BRACT2014039920

PATIENT
  Sex: 0

DRUGS (1)
  1. DENOSUMAB [Suspect]
     Indication: OSTEOPOROSIS
     Route: 065

REACTIONS (3)
  - Atypical fracture [Unknown]
  - Gastric disorder [Unknown]
  - Treatment noncompliance [Unknown]
